FAERS Safety Report 7349128-7 (Version None)
Quarter: 2011Q1

REPORT INFORMATION
  Report Type: 
  Country: None (occurrence: None)
  Receive Date: 20110314
  Receipt Date: 20110125
  Transmission Date: 20110831
  Serious: Yes (Death)
  Sender: FDA-Public Use
  Company Number: US-TYCO HEALTHCARE/MALLINCKRODT-T201100464

PATIENT
  Sex: Male

DRUGS (3)
  1. MORPHINE [Suspect]
  2. PSEUDOEPHEDRINE HCL [Suspect]
  3. PROPOXYPHENE [Suspect]

REACTIONS (1)
  - CARDIO-RESPIRATORY ARREST [None]
